FAERS Safety Report 14555165 (Version 1)
Quarter: 2018Q1

REPORT INFORMATION
  Report Type: Spontaneous
  Country: US (occurrence: US)
  Receive Date: 20180219
  Receipt Date: 20180219
  Transmission Date: 20180509
  Serious: Yes (Other)
  Sender: FDA-Public Use
  Company Number: None

PATIENT
  Age: 17 Year
  Sex: Male
  Weight: 72 kg

DRUGS (1)
  1. CONCERTA [Suspect]
     Active Substance: METHYLPHENIDATE HYDROCHLORIDE
     Indication: ATTENTION DEFICIT/HYPERACTIVITY DISORDER
     Route: 048
     Dates: start: 20171204, end: 20180101

REACTIONS (5)
  - Product substitution issue [None]
  - Disturbance in attention [None]
  - Headache [None]
  - Therapeutic response shortened [None]
  - Educational problem [None]

NARRATIVE: CASE EVENT DATE: 20171204
